FAERS Safety Report 5203350-4 (Version None)
Quarter: 2007Q1

REPORT INFORMATION
  Report Type: 
  Country: None (occurrence: None)
  Receive Date: 20070110
  Receipt Date: 20070102
  Transmission Date: 20070707
  Serious: Yes (Other)
  Sender: FDA-Public Use
  Company Number: BR-JNJFOC-20070100933

PATIENT
  Age: 41 Day
  Sex: Female
  Weight: 4 kg

DRUGS (1)
  1. DAKTARIN [Suspect]
     Indication: ORAL CANDIDIASIS
     Dosage: 20MG/G, 3 APPLICATIONS/DAY, TOPICAL
     Route: 061

REACTIONS (2)
  - DRUG DISPENSING ERROR [None]
  - DYSPNOEA [None]
